FAERS Safety Report 8053534-5 (Version None)
Quarter: 2011Q4

REPORT INFORMATION
  Report Type: 
  Country: None (occurrence: None)
  Receive Date: 20111213
  Receipt Date: 20110926
  Transmission Date: 20120403
  Serious: No
  Sender: FDA-Public Use
  Company Number: 2011SP046185

PATIENT
  Age: 55 Year
  Sex: Female

DRUGS (3)
  1. SAPHRIS [Suspect]
     Indication: PRODUCT USED FOR UNKNOWN INDICATION
     Dosage: 5 MG;BID;SL
     Route: 060
     Dates: start: 20110923, end: 20110925
  2. LEXAPRO [Concomitant]
  3. LAMICTAL [Concomitant]

REACTIONS (2)
  - MOVEMENT DISORDER [None]
  - HEADACHE [None]
